FAERS Safety Report 10530195 (Version 1)
Quarter: 2014Q4

REPORT INFORMATION
  Report Type: Spontaneous
  Country: US (occurrence: None)
  Receive Date: 20141020
  Receipt Date: 20141020
  Transmission Date: 20150528
  Serious: Yes (Life-Threatening, Hospitalization)
  Sender: FDA-Public Use
  Company Number: None

PATIENT
  Age: 40 Year
  Sex: Female
  Weight: 48.99 kg

DRUGS (1)
  1. LEVOXYL [Suspect]
     Active Substance: LEVOTHYROXINE SODIUM
     Indication: THYROID DISORDER
     Dosage: 1 PIL ONCE DAILY
     Dates: start: 20140226, end: 20140919

REACTIONS (17)
  - Loss of consciousness [None]
  - Overdose [None]
  - Tremor [None]
  - Peripheral coldness [None]
  - Nausea [None]
  - Migraine [None]
  - Shock [None]
  - Alopecia [None]
  - Heart rate increased [None]
  - Paraesthesia [None]
  - Fall [None]
  - Headache [None]
  - Weight decreased [None]
  - Hyperhidrosis [None]
  - Hypertension [None]
  - Dizziness [None]
  - Pyrexia [None]

NARRATIVE: CASE EVENT DATE: 20140908
